FAERS Safety Report 16047766 (Version 3)
Quarter: 2019Q3

REPORT INFORMATION
  Report Type: Spontaneous
  Country: FR (occurrence: FR)
  Receive Date: 20190307
  Receipt Date: 20190708
  Transmission Date: 20191004
  Serious: Yes (Disabling, Other)
  Sender: FDA-Public Use
  Company Number: FR-MYLANLABS-2019M1020855

PATIENT
  Age: 47 Year
  Sex: Female
  Weight: 74 kg

DRUGS (7)
  1. CYCLOPHOSPHAMIDE. [Suspect]
     Active Substance: CYCLOPHOSPHAMIDE
     Indication: BREAST CANCER
     Dosage: 180 MILLIGRAM
     Dates: start: 20111026, end: 20111207
  2. TAXOTERE [Suspect]
     Active Substance: DOCETAXEL
     Indication: BREAST CANCER FEMALE
     Dosage: 180 MILLIGRAM
     Dates: start: 20120104, end: 20120215
  3. ZELITREX [Concomitant]
     Active Substance: VALACYCLOVIR HYDROCHLORIDE
     Dosage: UNK
  4. ZOPHREN                            /00955301/ [Concomitant]
     Active Substance: ONDANSETRON
     Dosage: 8 MILLIGRAM
  5. TAMOXIFEN CITRATE. [Suspect]
     Active Substance: TAMOXIFEN CITRATE
     Dosage: UNK
     Route: 048
     Dates: start: 20120501
  6. EPIRUBICIN [Suspect]
     Active Substance: EPIRUBICIN
     Indication: BREAST CANCER FEMALE
     Dosage: UNK
     Dates: start: 20111026, end: 20121207
  7. FLUOROURACIL. [Suspect]
     Active Substance: FLUOROURACIL
     Indication: BREAST CANCER FEMALE
     Dosage: 900 MILLIGRAM
     Dates: start: 20111026, end: 20111207

REACTIONS (27)
  - Neuropathy peripheral [Unknown]
  - Muscle contracture [Unknown]
  - Pain in extremity [Unknown]
  - Asthenia [Unknown]
  - Nausea [Unknown]
  - Impaired work ability [Unknown]
  - Dysstasia [Unknown]
  - Mental impairment [Unknown]
  - Tetany [Unknown]
  - Reading disorder [Unknown]
  - Tinnitus [Unknown]
  - Muscle spasms [Unknown]
  - Pain [Unknown]
  - Hot flush [Unknown]
  - Fatigue [Unknown]
  - Cognitive disorder [Unknown]
  - Depression [Unknown]
  - Insomnia [Unknown]
  - Visual impairment [Unknown]
  - Loss of personal independence in daily activities [Unknown]
  - Dizziness [Unknown]
  - Disturbance in attention [Unknown]
  - Somatic hallucination [Unknown]
  - Feeling abnormal [Unknown]
  - Mental fatigue [Unknown]
  - Intellectual disability [Unknown]
  - Myalgia [Unknown]

NARRATIVE: CASE EVENT DATE: 20140602
